FAERS Safety Report 23735307 (Version 1)
Quarter: 2024Q2

REPORT INFORMATION
  Report Type: Spontaneous
  Country: CN (occurrence: CN)
  Receive Date: 20240412
  Receipt Date: 20240412
  Transmission Date: 20240716
  Serious: Yes (Hospitalization)
  Sender: FDA-Public Use
  Company Number: CN-002147023-NVSC2024CN077124

PATIENT
  Age: 17 Year
  Sex: Female
  Weight: 85 kg

DRUGS (3)
  1. OXCARBAZEPINE [Suspect]
     Active Substance: OXCARBAZEPINE
     Indication: Depression
     Dosage: 0.15 G, BID
     Route: 048
     Dates: start: 20240304
  2. OXCARBAZEPINE [Suspect]
     Active Substance: OXCARBAZEPINE
     Dosage: 0.3 G, BID
     Route: 048
     Dates: start: 20240308
  3. OXCARBAZEPINE [Suspect]
     Active Substance: OXCARBAZEPINE
     Dosage: 0.6 G, BID
     Route: 048
     Dates: start: 20240321, end: 20240326

REACTIONS (4)
  - Drug eruption [Recovering/Resolving]
  - Hypersensitivity [Unknown]
  - Rash [Recovering/Resolving]
  - Pruritus [Not Recovered/Not Resolved]

NARRATIVE: CASE EVENT DATE: 20240326
